FAERS Safety Report 14783331 (Version 1)
Quarter: 2018Q2

REPORT INFORMATION
  Report Type: Spontaneous
  Country: CN (occurrence: CN)
  Receive Date: 20180420
  Receipt Date: 20180420
  Transmission Date: 20180711
  Serious: Yes (Other)
  Sender: FDA-Public Use
  Company Number: CN-ASTRAZENECA-2018SE48162

PATIENT
  Age: 39 Year
  Sex: Male

DRUGS (1)
  1. GEFITINIB. [Suspect]
     Active Substance: GEFITINIB
     Indication: ADENOSQUAMOUS CELL LUNG CANCER STAGE IV
     Route: 048
     Dates: start: 201606

REACTIONS (5)
  - Drug resistance [Not Recovered/Not Resolved]
  - Malignant neoplasm progression [Unknown]
  - Metastases to muscle [Unknown]
  - Metastases to central nervous system [Unknown]
  - Metastases to skin [Recovering/Resolving]

NARRATIVE: CASE EVENT DATE: 20161215
